FAERS Safety Report 6656226-X (Version None)
Quarter: 2010Q1

REPORT INFORMATION
  Report Type: 
  Country: None (occurrence: None)
  Receive Date: 20100326
  Receipt Date: 20100326
  Transmission Date: 20100710
  Serious: No
  Sender: FDA-Public Use
  Company Number: None

PATIENT
  Age: 56 Year
  Sex: Female
  Weight: 63 kg

DRUGS (1)
  1. FERRLECIT [Suspect]
     Indication: IRON DEFICIENCY ANAEMIA
     Dosage: 250 MG ONCE IV DRIP, 1 DOSE ONLY
     Route: 041
     Dates: start: 20100225, end: 20100225

REACTIONS (6)
  - ABDOMINAL DISCOMFORT [None]
  - AUTONOMIC NERVOUS SYSTEM IMBALANCE [None]
  - INFUSION RELATED REACTION [None]
  - INJECTION SITE DISCOMFORT [None]
  - NAUSEA [None]
  - PARAESTHESIA [None]
